FAERS Safety Report 18496933 (Version 2)
Quarter: 2020Q4

REPORT INFORMATION
  Report Type: Spontaneous
  Country: JP (occurrence: JP)
  Receive Date: 20201112
  Receipt Date: 20201218
  Transmission Date: 20210114
  Serious: Yes (Other)
  Sender: FDA-Public Use
  Company Number: JP-AMGEN-JPNSP2020040515

PATIENT
  Age: 59 Year
  Sex: Male

DRUGS (9)
  1. IRINOTECAN HYDROCHLORIDE. [Suspect]
     Active Substance: IRINOTECAN HYDROCHLORIDE
     Indication: PRODUCT USED FOR UNKNOWN INDICATION
     Dosage: UNK
     Route: 065
     Dates: start: 20171204
  2. HIRUDOID [Concomitant]
     Active Substance: GLYCOSAMINOGLYCANS
     Dosage: UNK
     Route: 065
  3. VECTIBIX [Suspect]
     Active Substance: PANITUMUMAB
     Indication: COLON CANCER
     Dosage: 290 MILLIGRAM
     Route: 042
     Dates: start: 20171204
  4. OXALIPLATIN. [Suspect]
     Active Substance: OXALIPLATIN
     Indication: PRODUCT USED FOR UNKNOWN INDICATION
     Dosage: UNK
     Route: 065
     Dates: start: 20200421
  5. CALCIUM LEVOFOLINATE [Suspect]
     Active Substance: LEVOLEUCOVORIN CALCIUM
     Indication: PRODUCT USED FOR UNKNOWN INDICATION
     Dosage: UNK
     Route: 065
     Dates: start: 20171204
  6. VECTIBIX [Suspect]
     Active Substance: PANITUMUMAB
     Dosage: 230 MILLIGRAM
     Route: 042
  7. VECTIBIX [Suspect]
     Active Substance: PANITUMUMAB
     Dosage: 230 MILLIGRAM, Q3WK
     Route: 042
  8. FLUOROURACIL. [Suspect]
     Active Substance: FLUOROURACIL
     Indication: PRODUCT USED FOR UNKNOWN INDICATION
     Dosage: UNK
     Route: 065
     Dates: start: 20171204
  9. LOCOID [Concomitant]
     Active Substance: HYDROCORTISONE BUTYRATE
     Dosage: UNK
     Route: 065

REACTIONS (5)
  - Colon cancer [Unknown]
  - Skin discolouration [Not Recovered/Not Resolved]
  - Paronychia [Recovering/Resolving]
  - Inappropriate schedule of product administration [Unknown]
  - Disease progression [Unknown]

NARRATIVE: CASE EVENT DATE: 2020
